FAERS Safety Report 6868345-3 (Version None)
Quarter: 2010Q3

REPORT INFORMATION
  Report Type: 
  Country: None (occurrence: None)
  Receive Date: 20100722
  Receipt Date: 20080707
  Transmission Date: 20110219
  Serious: No
  Sender: FDA-Public Use
  Company Number: US-PFIZER INC-2008044573

PATIENT
  Sex: Female

DRUGS (3)
  1. CHANTIX [Suspect]
     Indication: NICOTINE DEPENDENCE
     Route: 048
     Dates: start: 20080422, end: 20080502
  2. COMBIVENT [Concomitant]
  3. FLORINEF [Concomitant]

REACTIONS (6)
  - ABNORMAL DREAMS [None]
  - COGNITIVE DISORDER [None]
  - DEPRESSED MOOD [None]
  - DEPRESSION [None]
  - FEELING ABNORMAL [None]
  - INSOMNIA [None]
